FAERS Safety Report 25461285 (Version 1)
Quarter: 2025Q2

REPORT INFORMATION
  Report Type: Spontaneous
  Country: US (occurrence: None)
  Receive Date: 20250618
  Receipt Date: 20250618
  Transmission Date: 20250717
  Serious: Yes (Death)
  Sender: FDA-CTU
  Company Number: None

PATIENT
  Sex: Male

DRUGS (7)
  1. COLLAGENASE SANTYL [Suspect]
     Active Substance: COLLAGENASE CLOSTRIDIUM HISTOLYTICUM
     Indication: Wound
     Dosage: DAILY TOPICAL
     Route: 061
  2. FERROUS SULFATE [Concomitant]
     Active Substance: FERROUS SULFATE
  3. magnesium 250mg [Concomitant]
  4. ACETAMINOPHEN\OXYCODONE HYDROCHLORIDE [Concomitant]
     Active Substance: ACETAMINOPHEN\OXYCODONE HYDROCHLORIDE
  5. PREGABALIN [Concomitant]
     Active Substance: PREGABALIN
  6. vitamin C powder [Concomitant]
  7. vitamin D 1,000 unit [Concomitant]

REACTIONS (3)
  - Pneumothorax [None]
  - Pneumonia [None]
  - General physical health deterioration [None]
